FAERS Safety Report 8445141-7 (Version None)
Quarter: 2012Q2

REPORT INFORMATION
  Report Type: 
  Country: None (occurrence: None)
  Receive Date: 20120618
  Receipt Date: 20120604
  Transmission Date: 20120825
  Serious: Yes (Other)
  Sender: FDA-Public Use
  Company Number: JP-ROCHE-1076894

PATIENT
  Sex: Female

DRUGS (14)
  1. ACTEMRA [Suspect]
     Route: 041
     Dates: start: 20090526, end: 20090623
  2. METHOTREXATE [Concomitant]
     Indication: RHEUMATOID ARTHRITIS
     Dosage: AMOUNT 2
     Route: 048
  3. RISEDRONATE SODIUM [Concomitant]
     Indication: OSTEOPOROSIS
     Route: 048
  4. PREDNISOLONE [Concomitant]
     Indication: RHEUMATOID ARTHRITIS
     Route: 048
  5. FAMOTIDINE [Concomitant]
     Indication: PROPHYLAXIS
     Route: 048
  6. ACTEMRA [Suspect]
     Route: 041
     Dates: start: 20091130
  7. MUCOSTA [Concomitant]
     Indication: PROPHYLAXIS
     Route: 048
  8. ACTEMRA [Suspect]
     Indication: RHEUMATOID ARTHRITIS
     Route: 041
     Dates: start: 20080513, end: 20080610
  9. ALFAROL [Concomitant]
     Indication: OSTEOPOROSIS
     Route: 048
  10. FOLIAMIN [Concomitant]
     Indication: PROPHYLAXIS
     Route: 048
  11. PREDNISOLONE [Concomitant]
     Dosage: UNCERTAIN DOSAGE (LESS THAN 5MG)
     Route: 048
  12. LIMETHASON [Concomitant]
     Indication: RHEUMATOID ARTHRITIS
     Route: 042
     Dates: start: 20080610, end: 20080610
  13. LOXONIN [Concomitant]
     Indication: RHEUMATOID ARTHRITIS
     Route: 048
  14. HUMIRA [Concomitant]
     Indication: RHEUMATOID ARTHRITIS
     Dosage: DOSAGE IS UNCERTAIN.
     Route: 042
     Dates: start: 20080708, end: 20081125

REACTIONS (2)
  - FALL [None]
  - JOINT INJURY [None]
